FAERS Safety Report 5805611-4 (Version None)
Quarter: 2008Q3

REPORT INFORMATION
  Report Type: 
  Country: None (occurrence: None)
  Receive Date: 20080708
  Receipt Date: 20080708
  Transmission Date: 20090109
  Serious: Yes (Other)
  Sender: FDA-Public Use
  Company Number: None

PATIENT
  Age: 44 Year
  Sex: Female
  Weight: 79.3795 kg

DRUGS (1)
  1. LOESTRIN 24 FE [Suspect]
     Indication: MENORRHAGIA
     Dosage: 1 MG ONCE DAILY PO
     Route: 048
     Dates: start: 20070706, end: 20080707

REACTIONS (3)
  - FATIGUE [None]
  - FUNGAL INFECTION [None]
  - MENSTRUATION IRREGULAR [None]
